FAERS Safety Report 24661995 (Version 3)
Quarter: 2025Q3

REPORT INFORMATION
  Report Type: Report from Study
  Country: CA (occurrence: CA)
  Receive Date: 20241125
  Receipt Date: 20250802
  Transmission Date: 20251021
  Serious: Yes (Other)
  Sender: ALEXION PHARMACEUTICALS
  Company Number: CA-AstraZeneca-CH-00712581A

PATIENT
  Sex: Female

DRUGS (4)
  1. TEZEPELUMAB [Suspect]
     Active Substance: TEZEPELUMAB
     Indication: Asthma
  2. QVAR [Concomitant]
     Active Substance: BECLOMETHASONE DIPROPIONATE
     Route: 065
  3. VENTOLIN [Concomitant]
     Active Substance: ALBUTEROL SULFATE
     Route: 065
  4. GLYCOPYRROLATE\INDACATEROL\MOMETASONE FUROATE [Concomitant]
     Active Substance: GLYCOPYRROLATE\INDACATEROL\MOMETASONE FUROATE
     Route: 065

REACTIONS (6)
  - Pericardial effusion [Unknown]
  - Pneumonia [Unknown]
  - Bronchitis [Unknown]
  - Asthma [Unknown]
  - Dyspnoea [Unknown]
  - Drug ineffective [Unknown]
